FAERS Safety Report 15762770 (Version 1)
Quarter: 2018Q4

REPORT INFORMATION
  Report Type: Spontaneous
  Country: DE (occurrence: DE)
  Receive Date: 20181226
  Receipt Date: 20181226
  Transmission Date: 20190205
  Serious: Yes (Other)
  Sender: FDA-Public Use
  Company Number: PHHY2018DE193930

PATIENT
  Age: 57 Year
  Sex: Male

DRUGS (1)
  1. INTERFERON BETA-1B [Suspect]
     Active Substance: INTERFERON BETA-1B
     Indication: MULTIPLE SCLEROSIS
     Dosage: 250 UG, QOD
     Route: 058
     Dates: start: 20060614, end: 20180530

REACTIONS (10)
  - Spindle cell sarcoma [Not Recovered/Not Resolved]
  - Musculoskeletal stiffness [Unknown]
  - Influenza like illness [Recovered/Resolved]
  - Nosocomial infection [Recovering/Resolving]
  - Metastases to lung [Unknown]
  - Injection site reaction [Recovering/Resolving]
  - Insomnia [Unknown]
  - Chills [Unknown]
  - Postoperative wound infection [Recovering/Resolving]
  - Metastases to spine [Unknown]

NARRATIVE: CASE EVENT DATE: 20180519
